FAERS Safety Report 8286361-4 (Version None)
Quarter: 2012Q2

REPORT INFORMATION
  Report Type: 
  Country: None (occurrence: None)
  Receive Date: 20120409
  Receipt Date: 20120227
  Transmission Date: 20120825
  Serious: Yes (Hospitalization)
  Sender: FDA-Public Use
  Company Number: QR60299-03

PATIENT
  Age: 53 Year
  Sex: Female
  Weight: 49.8957 kg

DRUGS (9)
  1. WARFARIN [Concomitant]
  2. RAMIPRIL [Concomitant]
  3. ACETAMINOPHEN [Concomitant]
  4. TRAMADOL HYDROCHLORIDE [Concomitant]
  5. PANTOPRAZOLE [Concomitant]
  6. URSODIOL [Concomitant]
  7. PHENOXYMETHYLPENICILLIN [Concomitant]
  8. FLUTICASONE PROPIONATE INHALER [Concomitant]
  9. GAMMAPLEX [Suspect]
     Indication: IMMUNODEFICIENCY
     Dosage: IV 24GRMS EVERY 3 WEEKS

REACTIONS (3)
  - INTERNATIONAL NORMALISED RATIO DECREASED [None]
  - PULMONARY EMBOLISM [None]
  - INTERNATIONAL NORMALISED RATIO INCREASED [None]
